FAERS Safety Report 8766520 (Version 2)
Quarter: 2012Q4

REPORT INFORMATION
  Report Type: 
  Country: US (occurrence: US)
  Receive Date: 20120905
  Receipt Date: 20121205
  Transmission Date: 20130627
  Serious: Yes (Hospitalization)
  Sender: FDA-Public Use
  Company Number: US-ASTRAZENECA-2012SE14897

PATIENT
  Age: 63 Year
  Sex: Female
  Weight: 54.4 kg

DRUGS (3)
  1. LISINOPRIL [Suspect]
     Route: 048
  2. SEROQUEL [Suspect]
     Indication: BIPOLAR DISORDER
     Route: 048
     Dates: start: 20120206, end: 201208
  3. SEROQUEL [Suspect]
     Indication: BIPOLAR DISORDER
     Route: 048
     Dates: start: 20120810

REACTIONS (9)
  - Condition aggravated [Recovered/Resolved]
  - Depression [Recovered/Resolved]
  - Drug dose omission [Recovered/Resolved]
  - Abulia [Unknown]
  - Memory impairment [Unknown]
  - Insomnia [Unknown]
  - Confusional state [Unknown]
  - Emotional disorder [Unknown]
  - Drug hypersensitivity [Unknown]
